FAERS Safety Report 4342629-5 (Version None)
Quarter: 2004Q2

REPORT INFORMATION
  Report Type: 
  Country: None (occurrence: None)
  Receive Date: 20040420
  Receipt Date: 20040420
  Transmission Date: 20050107
  Serious: Yes (Other)
  Sender: FDA-Public Use
  Company Number: None

PATIENT
  Sex: Male
  Weight: 95.2554 kg

DRUGS (1)
  1. ZYRTEC [Suspect]
     Indication: RHINITIS SEASONAL
     Dosage: 10 MG ONCE ORAL
     Route: 048
     Dates: start: 20010419, end: 20010419

REACTIONS (5)
  - IMPAIRED WORK ABILITY [None]
  - MUCOUS MEMBRANE DISORDER [None]
  - PRURITUS [None]
  - SKIN LESION [None]
  - URTICARIA PAPULAR [None]
